FAERS Safety Report 5833175-8 (Version None)
Quarter: 2008Q3

REPORT INFORMATION
  Report Type: 
  Country: None (occurrence: None)
  Receive Date: 20080805
  Receipt Date: 20080724
  Transmission Date: 20090109
  Serious: Yes (Congenital Anomaly, Other)
  Sender: FDA-Public Use
  Company Number: NSADSS2002026593

PATIENT
  Age: 1 Day
  Sex: Male
  Weight: 3.2 kg

DRUGS (3)
  1. REMICADE [Suspect]
     Route: 042
     Dates: start: 20010121
  2. REMICADE [Suspect]
     Indication: CROHN'S DISEASE
     Route: 042
     Dates: start: 20010121
  3. ASACOL [Suspect]
     Indication: CROHN'S DISEASE

REACTIONS (3)
  - CONGENITAL ANOMALY [None]
  - TRISOMY 21 [None]
  - VENTRICULAR SEPTAL DEFECT [None]
